FAERS Safety Report 15188721 (Version 2)
Quarter: 2018Q3

REPORT INFORMATION
  Report Type: Spontaneous
  Country: US (occurrence: US)
  Receive Date: 20180724
  Receipt Date: 20180725
  Transmission Date: 20181010
  Serious: No
  Sender: FDA-Public Use
  Company Number: US-PFIZER INC-2018227323

PATIENT
  Age: 1 Year
  Sex: Female

DRUGS (2)
  1. GENOTROPIN [Suspect]
     Active Substance: SOMATROPIN
     Dosage: 0.5 MG, UNK
  2. GENOTROPIN [Suspect]
     Active Substance: SOMATROPIN
     Dosage: 0.4 MG, DAILY
     Dates: start: 20170529

REACTIONS (8)
  - Blood creatinine decreased [Unknown]
  - Thyroxine free decreased [Unknown]
  - Device leakage [Unknown]
  - Blood potassium increased [Unknown]
  - Insulin-like growth factor decreased [Unknown]
  - Incorrect dose administered by device [Unknown]
  - Anion gap increased [Unknown]
  - Blood glucose increased [Unknown]
